FAERS Safety Report 5164226-4 (Version None)
Quarter: 2006Q4

REPORT INFORMATION
  Report Type: 
  Country: None (occurrence: None)
  Receive Date: 20060918
  Receipt Date: 20050930
  Transmission Date: 20070319
  Serious: Yes (Other)
  Sender: FDA-Public Use
  Company Number: US-JNJFOC-20051000781

PATIENT
  Age: 59 Year
  Sex: Female
  Weight: 74.8435 kg

DRUGS (8)
  1. TOPAMAX [Suspect]
     Indication: CONVULSION
     Dosage: 100 MG; 150 MG  :   IN 1 DAY, ORAL
     Route: 048
     Dates: start: 20050801, end: 20050925
  2. TOPAMAX [Suspect]
     Indication: NEURALGIA
     Dosage: 100 MG; 150 MG  :   IN 1 DAY, ORAL
     Route: 048
     Dates: start: 20050801, end: 20050925
  3. TOPAMAX [Suspect]
     Indication: CONVULSION
     Dosage: 100 MG; 150 MG  :   IN 1 DAY, ORAL
     Route: 048
     Dates: start: 20050925, end: 20050929
  4. TOPAMAX [Suspect]
     Indication: NEURALGIA
     Dosage: 100 MG; 150 MG  :   IN 1 DAY, ORAL
     Route: 048
     Dates: start: 20050925, end: 20050929
  5. TEGRETOL [Concomitant]
  6. PROZAC [Concomitant]
  7. ATIVAN [Concomitant]
  8. ATENOLOL [Concomitant]

REACTIONS (4)
  - CONVULSION [None]
  - INSOMNIA [None]
  - PSYCHOMOTOR HYPERACTIVITY [None]
  - TREMOR [None]
